FAERS Safety Report 7487566-2 (Version None)
Quarter: 2011Q1

REPORT INFORMATION
  Report Type: 
  Country: None (occurrence: None)
  Receive Date: 20110309
  Receipt Date: 20110112
  Transmission Date: 20110831
  Serious: Yes (Other)
  Sender: FDA-Public Use
  Company Number: 2011SP001882

PATIENT
  Age: 19 Year
  Sex: Male

DRUGS (2)
  1. SAPHRIS [Suspect]
     Indication: PRODUCT USED FOR UNKNOWN INDICATION
     Dosage: 10 MG; BID; SL
     Route: 060
     Dates: start: 20110111
  2. ZYPREXA [Concomitant]

REACTIONS (2)
  - TRISMUS [None]
  - DYSKINESIA [None]
